FAERS Safety Report 8231337-6 (Version None)
Quarter: 2012Q1

REPORT INFORMATION
  Report Type: 
  Country: None (occurrence: None)
  Receive Date: 20120320
  Receipt Date: 20120308
  Transmission Date: 20120608
  Serious: Yes (Hospitalization)
  Sender: FDA-Public Use
  Company Number: ACO_29723_2012

PATIENT
  Age: 42 Year
  Sex: Female

DRUGS (2)
  1. FAMPYRA (DALFAMPRIDINE) TABLET, 10MG [Suspect]
     Indication: MULTIPLE SCLEROSIS
     Dosage: 10 MG, BID, ORAL
     Route: 048
     Dates: start: 20120229, end: 20120302
  2. GILENYA [Concomitant]

REACTIONS (2)
  - LOSS OF CONSCIOUSNESS [None]
  - CONVULSION [None]
